FAERS Safety Report 6173228-0 (Version None)
Quarter: 2009Q2

REPORT INFORMATION
  Report Type: 
  Country: None (occurrence: None)
  Receive Date: 20090424
  Receipt Date: 20081229
  Transmission Date: 20091009
  Serious: No
  Sender: FDA-Public Use
  Company Number: ALL1-2008-03634

PATIENT
  Age: 44 Year
  Sex: Female
  Weight: 136.1 kg

DRUGS (7)
  1. VYVANSE [Suspect]
     Indication: ATTENTION DEFICIT/HYPERACTIVITY DISORDER
     Dosage: 70 MG, 1X/DAY:QD, ORAL
     Route: 048
     Dates: start: 20081101, end: 20081227
  2. KLONOPIN [Concomitant]
  3. EFFEXOR [Concomitant]
  4. TOPAMAX [Concomitant]
  5. SIMVASTATIN [Concomitant]
  6. GEODON [Concomitant]
  7. WELLBUTRIN [Concomitant]

REACTIONS (4)
  - CONDITION AGGRAVATED [None]
  - EMOTIONAL DISORDER [None]
  - IMPULSIVE BEHAVIOUR [None]
  - OFF LABEL USE [None]
